FAERS Safety Report 4987698-4 (Version None)
Quarter: 2006Q2

REPORT INFORMATION
  Report Type: 
  Country: None (occurrence: None)
  Receive Date: 20060428
  Receipt Date: 20060428
  Transmission Date: 20061013
  Serious: No
  Sender: FDA-Public Use
  Company Number: None

PATIENT
  Sex: Male
  Weight: 127.0072 kg

DRUGS (1)
  1. GENTAMICIN [Suspect]
     Indication: INFECTION
     Dosage: ONCE DAILY  IV DRIP
     Route: 041
     Dates: start: 20051013, end: 20051124

REACTIONS (3)
  - DIZZINESS [None]
  - LOSS OF EMPLOYMENT [None]
  - VESTIBULAR DISORDER [None]
